FAERS Safety Report 8118680-6 (Version None)
Quarter: 2011Q4

REPORT INFORMATION
  Report Type: 
  Country: None (occurrence: None)
  Receive Date: 20111227
  Receipt Date: 20111017
  Transmission Date: 20120403
  Serious: No
  Sender: FDA-Public Use
  Company Number: PHEH2011US07070

PATIENT
  Age: 51 Year
  Sex: Female

DRUGS (10)
  1. VITAMIN D [Concomitant]
  2. GILENYA [Suspect]
     Dosage: 0.5 MG, QD, ORAL
     Route: 048
     Dates: start: 20110907
  3. AMPYRA [Concomitant]
  4. TEMAZEPAM [Concomitant]
  5. SYNTHROID [Concomitant]
  6. LITHIUM CARBONATE [Concomitant]
  7. PRIMIDONE [Concomitant]
  8. CALCIUM CARBONATE [Concomitant]
  9. FOSAMAX [Concomitant]
  10. DEPAKOTE [Concomitant]

REACTIONS (3)
  - URINARY TRACT INFECTION [None]
  - HYPOAESTHESIA [None]
  - PARAESTHESIA [None]
